FAERS Safety Report 26090458 (Version 2)
Quarter: 2025Q4

REPORT INFORMATION
  Report Type: Spontaneous
  Country: EU (occurrence: EU)
  Receive Date: 20251126
  Receipt Date: 20251205
  Transmission Date: 20260118
  Serious: Yes (Hospitalization, Other)
  Sender: AUROBINDO
  Company Number: EU-AstrazenecaRSG-4105-D926NC00001(Prod)000006

PATIENT
  Age: 62 Year
  Sex: Male
  Weight: 78 kg

DRUGS (73)
  1. CARBOPLATIN [Suspect]
     Active Substance: CARBOPLATIN
     Indication: Non-small cell lung cancer metastatic
     Dosage: 4 EVERY THREE WEEKS
     Dates: start: 20231127, end: 20231127
  2. CARBOPLATIN [Suspect]
     Active Substance: CARBOPLATIN
     Dosage: 4 EVERY THREE WEEKS
     Dates: start: 20231106, end: 20231106
  3. CARBOPLATIN [Suspect]
     Active Substance: CARBOPLATIN
     Dosage: 5 EVERY THREE WEEKS
     Dates: start: 20230921, end: 20230921
  4. PEMBROLIZUMAB [Suspect]
     Active Substance: PEMBROLIZUMAB
     Indication: Non-small cell lung cancer metastatic
     Dosage: 200 MILLIGRAM ONCE EVERY 3 WK
     Dates: start: 20230921, end: 20250606
  5. PEMBROLIZUMAB [Suspect]
     Active Substance: PEMBROLIZUMAB
     Dosage: 200 MILLIGRAM ONCE EVERY 3 WK
     Dates: start: 20241204, end: 20241204
  6. PEMBROLIZUMAB [Suspect]
     Active Substance: PEMBROLIZUMAB
     Dosage: 200 MILLIGRAM ONCE EVERY 3 WK
     Dates: start: 20240516, end: 20240516
  7. PEMBROLIZUMAB [Suspect]
     Active Substance: PEMBROLIZUMAB
     Dosage: 200 MILLIGRAM ONCE EVERY 3 WK
     Dates: start: 20240424, end: 20240424
  8. PEMBROLIZUMAB [Suspect]
     Active Substance: PEMBROLIZUMAB
     Dosage: 200 MILLIGRAM ONCE EVERY 3 WK
     Dates: start: 20240130, end: 20240130
  9. PEMBROLIZUMAB [Suspect]
     Active Substance: PEMBROLIZUMAB
     Dosage: 200 MILLIGRAM ONCE EVERY 3 WK
     Dates: start: 20250124, end: 20250124
  10. PEMBROLIZUMAB [Suspect]
     Active Substance: PEMBROLIZUMAB
     Dosage: 200 MILLIGRAM ONCE EVERY 3 WK
     Dates: start: 20250124, end: 20250221
  11. PEMBROLIZUMAB [Suspect]
     Active Substance: PEMBROLIZUMAB
     Dosage: 200 MILLIGRAM ONCE EVERY 3 WK
     Dates: start: 20250404, end: 20250404
  12. PEMBROLIZUMAB [Suspect]
     Active Substance: PEMBROLIZUMAB
     Dosage: 200 MILLIGRAM ONCE EVERY 3 WK
     Dates: start: 20241112, end: 20241112
  13. PEMBROLIZUMAB [Suspect]
     Active Substance: PEMBROLIZUMAB
     Dosage: 200 MILLIGRAM ONCE EVERY 3 WK
     Dates: start: 20230921, end: 20230921
  14. PEMBROLIZUMAB [Suspect]
     Active Substance: PEMBROLIZUMAB
     Dosage: 200 MILLIGRAM ONCE EVERY 3 WK
     Dates: start: 20240901, end: 20240901
  15. PEMBROLIZUMAB [Suspect]
     Active Substance: PEMBROLIZUMAB
     Dosage: 200 MILLIGRAM ONCE EVERY 3 WK
     Dates: start: 20240705, end: 20240705
  16. PEMBROLIZUMAB [Suspect]
     Active Substance: PEMBROLIZUMAB
     Dosage: 200 MILLIGRAM ONCE EVERY 3 WK
     Dates: start: 20250516, end: 20250516
  17. PEMBROLIZUMAB [Suspect]
     Active Substance: PEMBROLIZUMAB
     Dosage: 200 MILLIGRAM ONCE EVERY 3 WK
     Dates: start: 20240403, end: 20240403
  18. PEMBROLIZUMAB [Suspect]
     Active Substance: PEMBROLIZUMAB
     Dosage: 200 MILLIGRAM ONCE EVERY 3 WK
     Dates: start: 20240820, end: 20240820
  19. PEMBROLIZUMAB [Suspect]
     Active Substance: PEMBROLIZUMAB
     Dosage: 200 MILLIGRAM ONCE EVERY 3 WK
     Dates: start: 20240109, end: 20240109
  20. PEMBROLIZUMAB [Suspect]
     Active Substance: PEMBROLIZUMAB
     Dosage: 200 MILLIGRAM ONCE EVERY 3 WK
     Dates: start: 20250314, end: 20250314
  21. PEMBROLIZUMAB [Suspect]
     Active Substance: PEMBROLIZUMAB
     Dosage: 200 MILLIGRAM ONCE EVERY 3 WK
     Dates: start: 20240726, end: 20240726
  22. PEMBROLIZUMAB [Suspect]
     Active Substance: PEMBROLIZUMAB
     Dosage: 200 MILLIGRAM ONCE EVERY 3 WK
     Dates: start: 20241022, end: 20241022
  23. PEMBROLIZUMAB [Suspect]
     Active Substance: PEMBROLIZUMAB
     Dosage: 200 MILLIGRAM ONCE EVERY 3 WK
     Dates: start: 20231106, end: 20231106
  24. PEMBROLIZUMAB [Suspect]
     Active Substance: PEMBROLIZUMAB
     Dosage: 200 MILLIGRAM ONCE EVERY 3 WK
     Dates: start: 20250606, end: 20250606
  25. PEMBROLIZUMAB [Suspect]
     Active Substance: PEMBROLIZUMAB
     Dosage: 200 MILLIGRAM ONCE EVERY 3 WK
     Dates: start: 20240613, end: 20240613
  26. PEMBROLIZUMAB [Suspect]
     Active Substance: PEMBROLIZUMAB
     Dosage: 200 MILLIGRAM ONCE EVERY 3 WK
     Dates: start: 20241001, end: 20241001
  27. PEMBROLIZUMAB [Suspect]
     Active Substance: PEMBROLIZUMAB
     Dosage: 200 MILLIGRAM ONCE EVERY 3 WK
     Dates: start: 20240312, end: 20240312
  28. PEMBROLIZUMAB [Suspect]
     Active Substance: PEMBROLIZUMAB
     Dosage: 200 MILLIGRAM ONCE EVERY 3 WK
     Dates: start: 20240220, end: 20240220
  29. PEMBROLIZUMAB [Suspect]
     Active Substance: PEMBROLIZUMAB
     Dosage: 200 MILLIGRAM ONCE EVERY 3 WK
     Dates: start: 20231219, end: 20231219
  30. PEMBROLIZUMAB [Suspect]
     Active Substance: PEMBROLIZUMAB
     Dosage: 200 MILLIGRAM ONCE EVERY 3 WK
     Dates: start: 20231012, end: 20231012
  31. PEMBROLIZUMAB [Suspect]
     Active Substance: PEMBROLIZUMAB
     Dosage: 200 MILLIGRAM ONCE EVERY 3 WK
     Dates: start: 20231127, end: 20231127
  32. PEMBROLIZUMAB [Suspect]
     Active Substance: PEMBROLIZUMAB
     Dosage: 200 MILLIGRAM ONCE EVERY 3 WK
  33. PEMETREXED [Suspect]
     Active Substance: PEMETREXED
     Indication: Non-small cell lung cancer metastatic
     Dosage: 500 MILLIGRAM/SQ. METER  ONCE EVERY 3 WK
     Dates: start: 20230921, end: 20241112
  34. PEMETREXED [Suspect]
     Active Substance: PEMETREXED
     Dosage: 375 MILLIGRAM/SQ. METER ONCE EVERY 3 WK
     Dates: start: 20241204, end: 20250606
  35. PEMETREXED [Suspect]
     Active Substance: PEMETREXED
     Dosage: 500 MILLIGRAM/SQ. METER ONCE EVERY 3 WK
     Dates: start: 20241121, end: 20241121
  36. PEMETREXED [Suspect]
     Active Substance: PEMETREXED
     Dosage: 500 MILLIGRAM/SQ. METER ONCE EVERY 3 WK
     Dates: start: 20240516, end: 20240516
  37. PEMETREXED [Suspect]
     Active Substance: PEMETREXED
     Dosage: 500 MILLIGRAM/SQ. METER ONCE EVERY 3 WK
     Dates: start: 20240726, end: 20240726
  38. PEMETREXED [Suspect]
     Active Substance: PEMETREXED
     Dosage: 500 MILLIGRAM/SQ. METER ONCE EVERY 3 WK
     Dates: start: 20240130, end: 20240130
  39. PEMETREXED [Suspect]
     Active Substance: PEMETREXED
     Dosage: 500 MILLIGRAM/SQ. METER ONCE EVERY 3 WK
     Dates: start: 20240705, end: 20240705
  40. PEMETREXED [Suspect]
     Active Substance: PEMETREXED
     Dosage: 500 MILLIGRAM/SQ. METER ONCE EVERY 3 WK
     Dates: start: 20231012, end: 20231012
  41. PEMETREXED [Suspect]
     Active Substance: PEMETREXED
     Dosage: 500 MILLIGRAM/SQ. METER ONCE EVERY 3 WK
     Dates: start: 20241204, end: 20241204
  42. PEMETREXED [Suspect]
     Active Substance: PEMETREXED
     Dosage: 500 MILLIGRAM/SQ. METER ONCE EVERY 3 WK
     Dates: start: 20231127, end: 20231127
  43. PEMETREXED [Suspect]
     Active Substance: PEMETREXED
     Dosage: 500 MILLIGRAM/SQ. METER ONCE EVERY 3 WK
     Dates: start: 20250516, end: 20250516
  44. PEMETREXED [Suspect]
     Active Substance: PEMETREXED
     Dosage: 500 MILLIGRAM/SQ. METER ONCE EVERY 3 WK
     Dates: start: 20240424, end: 20240424
  45. PEMETREXED [Suspect]
     Active Substance: PEMETREXED
     Dosage: 500 MILLIGRAM/SQ. METER ONCE EVERY 3 WK
     Dates: start: 20241001, end: 20241001
  46. PEMETREXED [Suspect]
     Active Substance: PEMETREXED
     Dosage: 500 MILLIGRAM/SQ. METER ONCE EVERY 3 WK
     Dates: start: 20231106, end: 20231106
  47. PEMETREXED [Suspect]
     Active Substance: PEMETREXED
     Dosage: 500 MILLIGRAM/SQ. METER ONCE EVERY 3 WK
     Dates: start: 20240910, end: 20240910
  48. PEMETREXED [Suspect]
     Active Substance: PEMETREXED
     Dosage: 500 MILLIGRAM/SQ. METER ONCE EVERY 3 WK
     Dates: start: 20240820, end: 20240820
  49. PEMETREXED [Suspect]
     Active Substance: PEMETREXED
     Dosage: 500 MILLIGRAM/SQ. METER ONCE EVERY 3 WK
     Dates: start: 20240613, end: 20240613
  50. PEMETREXED [Suspect]
     Active Substance: PEMETREXED
     Dosage: 500 MILLIGRAM/SQ. METER ONCE EVERY 3 WK
     Dates: start: 20231219, end: 20231219
  51. PEMETREXED [Suspect]
     Active Substance: PEMETREXED
     Dosage: 500 MILLIGRAM/SQ. METER ONCE EVERY 3 WK
     Dates: start: 20241022, end: 20241022
  52. PEMETREXED [Suspect]
     Active Substance: PEMETREXED
     Dosage: 500 MILLIGRAM/SQ. METER ONCE EVERY 3 WK
     Dates: start: 20250404, end: 20250404
  53. PEMETREXED [Suspect]
     Active Substance: PEMETREXED
     Dosage: 500 MILLIGRAM/SQ. METER ONCE EVERY 3 WK
     Dates: start: 20250312, end: 20250312
  54. PEMETREXED [Suspect]
     Active Substance: PEMETREXED
     Dosage: 500 MILLIGRAM/SQ. METER ONCE EVERY 3 WK
     Dates: start: 20240220, end: 20240220
  55. PEMETREXED [Suspect]
     Active Substance: PEMETREXED
     Dosage: 500 MILLIGRAM/SQ. METER ONCE EVERY 3 WK
     Dates: start: 20250606, end: 20250606
  56. PEMETREXED [Suspect]
     Active Substance: PEMETREXED
     Dosage: 500 MILLIGRAM/SQ. METER ONCE EVERY 3 WK
     Dates: start: 20230921, end: 20230921
  57. PEMETREXED [Suspect]
     Active Substance: PEMETREXED
     Dosage: 500 MILLIGRAM/SQ. METER ONCE EVERY 3 WK
     Dates: start: 20250124, end: 20250124
  58. PEMETREXED [Suspect]
     Active Substance: PEMETREXED
     Dosage: 500 MILLIGRAM/SQ. METER ONCE EVERY 3 WK
     Dates: start: 20250424, end: 20250424
  59. PEMETREXED [Suspect]
     Active Substance: PEMETREXED
     Dosage: 500 MILLIGRAM/SQ. METER ONCE EVERY 3 WK
     Dates: start: 20240109, end: 20240109
  60. PEMETREXED [Suspect]
     Active Substance: PEMETREXED
     Dosage: 500 MILLIGRAM/SQ. METER ONCE EVERY 3 WK
     Dates: start: 20240403, end: 20240403
  61. CISPLATIN [Suspect]
     Active Substance: CISPLATIN
     Indication: Non-small cell lung cancer metastatic
     Dosage: 75 MILLIGRAM/SQ. METER  ONCE EVERY 3 WK
  62. DEXAMETHASONE [Concomitant]
     Active Substance: DEXAMETHASONE
     Indication: Product used for unknown indication
     Dosage: 8 MILLIGRAM ONCE EVERY 1 WK
  63. ASPIRIN [Concomitant]
     Active Substance: ASPIRIN
     Indication: Product used for unknown indication
     Dosage: 100 MILLIGRAM, ONCE A DAY
     Dates: start: 20200101
  64. LANTUS [Concomitant]
     Active Substance: INSULIN GLARGINE
     Indication: Diabetes mellitus
     Dosage: 14 INTERNATIONAL UNIT, ONCE A DAY
     Dates: start: 20230501
  65. METFORMIN HYDROCHLORIDE [Concomitant]
     Active Substance: METFORMIN HYDROCHLORIDE
     Indication: Diabetes mellitus
     Dosage: 850 MILLIGRAM, TWO TIMES A DAY
     Dates: start: 20230501
  66. METFORMIN HYDROCHLORIDE [Concomitant]
     Active Substance: METFORMIN HYDROCHLORIDE
     Dosage: 1000 MILLIGRAM, TWO TIMES A DAY
     Dates: start: 20230501
  67. PREDNISONE [Concomitant]
     Active Substance: PREDNISONE
     Indication: Product used for unknown indication
     Dosage: 25 MILLIGRAM, ONCE A DAY
     Dates: start: 20240110, end: 20240112
  68. PREDNISONE [Concomitant]
     Active Substance: PREDNISONE
     Dosage: 25 MILLIGRAM, ONCE A DAY
     Dates: start: 20240110, end: 20240112
  69. PANTOPRAZOLE SODIUM [Concomitant]
     Active Substance: PANTOPRAZOLE SODIUM
     Indication: Abdominal pain upper
     Dosage: 40 MILLIGRAM, ONCE A DAY
     Dates: start: 20230920
  70. FOLIC ACID [Concomitant]
     Active Substance: FOLIC ACID
     Indication: Product used for unknown indication
     Dosage: 5 MILLIGRAM, ONCE A DAY
     Dates: start: 20230618
  71. CYANOCOBALAMIN [Concomitant]
     Active Substance: CYANOCOBALAMIN
     Indication: Product used for unknown indication
     Dosage: 1000
  72. FUROSEMIDE [Concomitant]
     Active Substance: FUROSEMIDE
     Indication: Peripheral swelling
     Dosage: 25 MILLIGRAM( 25 MG, ONCE EVERY 4 WK )
  73. FILGRASTIM [Concomitant]
     Active Substance: FILGRASTIM
     Indication: Neutropenia
     Dosage: UNK, 30, 5 DAY PER CYCLE

REACTIONS (2)
  - Prostate cancer [Not Recovered/Not Resolved]
  - Rectal haemorrhage [Recovered/Resolved]

NARRATIVE: CASE EVENT DATE: 20240717
